FAERS Safety Report 11981181 (Version 1)
Quarter: 2016Q1

REPORT INFORMATION
  Report Type: Spontaneous
  Country: US (occurrence: US)
  Receive Date: 20160129
  Receipt Date: 20160129
  Transmission Date: 20160526
  Serious: No
  Sender: FDA-Public Use
  Company Number: US-ASTRAZENECA-2016SE06627

PATIENT
  Age: 47 Year
  Sex: Female
  Weight: 59.9 kg

DRUGS (2)
  1. ARIMIDEX [Suspect]
     Active Substance: ANASTROZOLE
     Indication: PROPHYLAXIS
     Route: 048
     Dates: start: 2013, end: 20160113
  2. AMOXICILLIN. [Concomitant]
     Active Substance: AMOXICILLIN
     Indication: EAR INFECTION
     Route: 048

REACTIONS (7)
  - Dizziness [Unknown]
  - Off label use [Unknown]
  - Neck pain [Unknown]
  - Feeling abnormal [Recovering/Resolving]
  - Adverse event [Unknown]
  - Asthenia [Unknown]
  - Vertigo [Unknown]

NARRATIVE: CASE EVENT DATE: 2013
